FAERS Safety Report 7528953-3 (Version None)
Quarter: 2011Q2

REPORT INFORMATION
  Report Type: 
  Country: None (occurrence: None)
  Receive Date: 20110607
  Receipt Date: 20110603
  Transmission Date: 20111010
  Serious: Yes (Other)
  Sender: FDA-Public Use
  Company Number: US-PFIZER INC-2011121150

PATIENT
  Age: 71 Year
  Sex: Male

DRUGS (2)
  1. TEMSIROLIMUS [Suspect]
     Indication: TESTICULAR LEIOMYOSARCOMA
     Dosage: 25 MG, OVER 30 MINUTES WEEKLY
     Route: 042
     Dates: start: 20100720
  2. IMC-A12 [Suspect]
     Indication: TESTICULAR LEIOMYOSARCOMA
     Dosage: 6 MG/KG, OVER 60 MINUTES WEEKLY
     Route: 042
     Dates: start: 20100720

REACTIONS (1)
  - PARONYCHIA [None]
